FAERS Safety Report 4494930-2 (Version None)
Quarter: 2004Q4

REPORT INFORMATION
  Report Type: 
  Country: None (occurrence: None)
  Receive Date: 20041104
  Receipt Date: 20041104
  Transmission Date: 20050328
  Serious: Yes (Hospitalization, Other)
  Sender: FDA-Public Use
  Company Number: None

PATIENT
  Sex: Male
  Weight: 103.1933 kg

DRUGS (10)
  1. BEVACIZUMAB 5MG/KG   AVASTIN (R) BY GENETECH, INC [Suspect]
     Indication: COLON CANCER STAGE III
     Dosage: 500 MG Q 14 DAYS INTRAVENOUS
     Route: 042
     Dates: start: 20040625, end: 20040709
  2. IRINORECAN [Concomitant]
  3. LEUCOVORIN [Concomitant]
  4. FLUOROURACIL [Concomitant]
  5. ATENOLOL [Concomitant]
  6. CIMETIDINE [Concomitant]
  7. LORAZEPAM [Concomitant]
  8. MORPHINE [Concomitant]
  9. OXYCODONE HCL [Concomitant]
  10. ZOLPIDEM [Concomitant]

REACTIONS (5)
  - DYSPHAGIA [None]
  - DYSPHONIA [None]
  - LOCAL SWELLING [None]
  - PARAESTHESIA [None]
  - SENSATION OF PRESSURE [None]
